FAERS Safety Report 16600816 (Version 3)
Quarter: 2019Q3

REPORT INFORMATION
  Report Type: Report from Study
  Country: CO (occurrence: CO)
  Receive Date: 20190719
  Receipt Date: 20190725
  Transmission Date: 20191004
  Serious: Yes (Death, Hospitalization)
  Sender: FDA-Public Use
  Company Number: PHHY2019CO167873

PATIENT
  Age: 51 Year
  Sex: Female
  Weight: 83 kg

DRUGS (1)
  1. REVOLADE [Suspect]
     Active Substance: ELTROMBOPAG
     Indication: THROMBOCYTOPENIA
     Dosage: 50 MG, QD
     Route: 048

REACTIONS (12)
  - Grip strength decreased [Unknown]
  - Malaise [Unknown]
  - Pain in extremity [Unknown]
  - Gastritis [Unknown]
  - Haemorrhagic stroke [Unknown]
  - Skin discolouration [Unknown]
  - Facial asymmetry [Unknown]
  - Cerebral infarction [Fatal]
  - Hypertension [Unknown]
  - Inflammation [Unknown]
  - Myocardial infarction [Fatal]
  - Gait disturbance [Unknown]

NARRATIVE: CASE EVENT DATE: 20190706
